FAERS Safety Report 8923550 (Version 1)
Quarter: 2012Q4

REPORT INFORMATION
  Report Type: Spontaneous
  Country: US (occurrence: None)
  Receive Date: 20121115
  Receipt Date: 20121115
  Transmission Date: 20130627
  Serious: No
  Sender: FDA-Public Use
  Company Number: None

PATIENT
  Age: 31 Year
  Sex: Female
  Weight: 56.9 kg

DRUGS (7)
  1. MINOCYCLINE [Suspect]
     Indication: ACNE
     Dates: start: 20110202, end: 20110212
  2. ALPRAZOLAM [Concomitant]
  3. ESCITALOPRAM [Concomitant]
  4. LEVOTHYROXINE [Concomitant]
  5. SOTALOL [Concomitant]
  6. SPIRONOLACTONE [Concomitant]
  7. VARENICLINE [Concomitant]

REACTIONS (11)
  - Drug-induced liver injury [None]
  - Jaundice [None]
  - Pruritus [None]
  - Arthralgia [None]
  - Swelling [None]
  - Pyrexia [None]
  - Alanine aminotransferase increased [None]
  - Aspartate aminotransferase increased [None]
  - Antinuclear antibody positive [None]
  - Autoimmune hepatitis [None]
  - No reaction on previous exposure to drug [None]
